FAERS Safety Report 7179593-X (Version None)
Quarter: 2010Q4

REPORT INFORMATION
  Report Type: 
  Country: None (occurrence: None)
  Receive Date: 20101221
  Receipt Date: 20101208
  Transmission Date: 20110411
  Serious: Yes (Hospitalization)
  Sender: FDA-Public Use
  Company Number: PHHY2010AU49439

PATIENT
  Sex: Male

DRUGS (1)
  1. CLOZARIL [Suspect]
     Dosage: 500 MG
     Route: 048
     Dates: start: 20100304

REACTIONS (3)
  - CELLULITIS [None]
  - POST PROCEDURAL COMPLICATION [None]
  - SURGERY [None]
